FAERS Safety Report 4898830-5 (Version None)
Quarter: 2006Q1

REPORT INFORMATION
  Report Type: 
  Country: None (occurrence: None)
  Receive Date: 20060202
  Receipt Date: 20051124
  Transmission Date: 20060701
  Serious: Yes (Hospitalization)
  Sender: FDA-Public Use
  Company Number: JP-GLAXOSMITHKLINE-B0401808A

PATIENT
  Age: 51 Year
  Sex: Male

DRUGS (6)
  1. EPIVIR [Suspect]
     Indication: HIV INFECTION
     Dosage: 150MG TWICE PER DAY
     Route: 048
     Dates: start: 20000829
  2. RETROVIR [Suspect]
     Indication: HIV INFECTION
     Dosage: 400MG PER DAY
     Route: 048
     Dates: start: 20000829
  3. STOCRIN [Concomitant]
     Indication: HIV INFECTION
     Route: 048
     Dates: start: 20000829
  4. CEFAZOLIN [Concomitant]
     Indication: CELLULITIS
     Dosage: 1G TWICE PER DAY
     Route: 042
     Dates: start: 20000815, end: 20030826
  5. UNASYN [Concomitant]
     Indication: CELLULITIS
     Dosage: 3G TWICE PER DAY
     Route: 042
     Dates: start: 20010822, end: 20010903
  6. UNASYN [Concomitant]
     Dosage: 375MG THREE TIMES PER DAY
     Route: 048
     Dates: start: 20010904, end: 20010908

REACTIONS (5)
  - ABDOMINAL PAIN [None]
  - CELLULITIS [None]
  - CHOLECYSTITIS [None]
  - DECREASED APPETITE [None]
  - GROIN PAIN [None]
